FAERS Safety Report 4887083-X (Version None)
Quarter: 2006Q1

REPORT INFORMATION
  Report Type: 
  Country: None (occurrence: None)
  Receive Date: 20060120
  Receipt Date: 20051005
  Transmission Date: 20060701
  Serious: Yes (Hospitalization, Disabling)
  Sender: FDA-Public Use
  Company Number: US-MERCK-0510USA04169

PATIENT
  Age: 50 Year
  Sex: Female
  Weight: 80 kg

DRUGS (6)
  1. VIOXX [Suspect]
     Indication: ARTHRALGIA
     Route: 048
     Dates: start: 19990101, end: 20040101
  2. SYNTHROID [Concomitant]
     Route: 065
  3. BUSPAR [Concomitant]
     Route: 065
  4. ZOLOFT [Concomitant]
     Route: 065
  5. TOPROL-XL [Concomitant]
     Route: 065
  6. LESCOL [Concomitant]
     Route: 065

REACTIONS (13)
  - DEEP VEIN THROMBOSIS [None]
  - DEPRESSION [None]
  - DISTURBANCE IN ATTENTION [None]
  - DIVERTICULUM INTESTINAL [None]
  - HEPATIC CYST [None]
  - HERPES ZOSTER [None]
  - MEMORY IMPAIRMENT [None]
  - MENTAL DISORDER [None]
  - PERICARDIAL EFFUSION [None]
  - PULMONARY EMBOLISM [None]
  - PULMONARY OEDEMA [None]
  - THROMBOSIS [None]
  - URINARY INCONTINENCE [None]
